FAERS Safety Report 20088780 (Version 1)
Quarter: 2021Q4

REPORT INFORMATION
  Report Type: Spontaneous
  Country: US (occurrence: US)
  Receive Date: 20211119
  Receipt Date: 20211119
  Transmission Date: 20220303
  Serious: No
  Sender: FDA-Public Use
  Company Number: US-DECIPHERA PHARMACEUTICALS LLC-2021US000702

PATIENT
  Age: 79 Year
  Sex: Female

DRUGS (1)
  1. QINLOCK [Suspect]
     Active Substance: RIPRETINIB
     Indication: Neoplasm malignant
     Dosage: 150 MILLIGRAM, QD
     Route: 048
     Dates: start: 20210831

REACTIONS (3)
  - Blood pressure increased [Not Recovered/Not Resolved]
  - Surgery [Unknown]
  - Diarrhoea [Not Recovered/Not Resolved]

NARRATIVE: CASE EVENT DATE: 20210801
